FAERS Safety Report 7274486-1 (Version None)
Quarter: 2011Q1

REPORT INFORMATION
  Report Type: 
  Country: None (occurrence: None)
  Receive Date: 20110201
  Receipt Date: 20110201
  Transmission Date: 20110831
  Serious: Yes (Hospitalization)
  Sender: FDA-Public Use
  Company Number: None

PATIENT
  Sex: Male
  Weight: 73.1 kg

DRUGS (3)
  1. CARBOPLATIN [Suspect]
     Dosage: 645 MG
     Dates: end: 20110103
  2. TAXOL [Suspect]
     Dosage: 380 MG
     Dates: end: 20110103
  3. BEVACIZUMAB (RHUMAB VEGF) [Suspect]
     Dosage: 1097 MG
     Dates: end: 20110103

REACTIONS (2)
  - PULMONARY EMBOLISM [None]
  - DEEP VEIN THROMBOSIS [None]
